FAERS Safety Report 7484296-8 (Version None)
Quarter: 2011Q2

REPORT INFORMATION
  Report Type: 
  Country: None (occurrence: None)
  Receive Date: 20110517
  Receipt Date: 20101206
  Transmission Date: 20111010
  Serious: Yes (Hospitalization, Other)
  Sender: FDA-Public Use
  Company Number: US-BAYER-201040796NA

PATIENT
  Age: 32 Year
  Sex: Male
  Weight: 86.168 kg

DRUGS (6)
  1. AVELOX [Suspect]
     Indication: HYPERAEMIA
  2. ALBUTEROL [Concomitant]
     Indication: PRODUCT USED FOR UNKNOWN INDICATION
  3. ADVAIR DISKUS 100/50 [Concomitant]
     Indication: PRODUCT USED FOR UNKNOWN INDICATION
  4. AVELOX [Suspect]
     Indication: DYSPNOEA
     Dosage: 400 MG (DAILY DOSE), QD, ORAL
     Route: 048
     Dates: start: 20101109, end: 20101109
  5. AVELOX [Suspect]
     Indication: LUNG INFECTION
  6. SINGULAIR [Concomitant]
     Indication: PRODUCT USED FOR UNKNOWN INDICATION
     Dosage: 10 MG, PRN

REACTIONS (6)
  - PHARYNGEAL OEDEMA [None]
  - PRURITUS GENERALISED [None]
  - DYSPNOEA [None]
  - SWOLLEN TONGUE [None]
  - LIP SWELLING [None]
  - HYPERSENSITIVITY [None]
